FAERS Safety Report 11298909 (Version 1)
Quarter: 2015Q3

REPORT INFORMATION
  Report Type: Spontaneous
  Country: US (occurrence: US)
  Receive Date: 20150722
  Receipt Date: 20150722
  Transmission Date: 20151125
  Serious: Yes (Hospitalization)
  Sender: FDA-Public Use
  Company Number: US-ELI_LILLY_AND_COMPANY-US201205006722

PATIENT
  Age: 74 Year
  Sex: Male

DRUGS (4)
  1. ASPIRIN. [Concomitant]
     Active Substance: ASPIRIN
     Dosage: 325 MG, QD
  2. EFFIENT [Suspect]
     Active Substance: PRASUGREL HYDROCHLORIDE
     Dosage: 10 MG, QD
     Route: 065
  3. CELEBREX [Concomitant]
     Active Substance: CELECOXIB
     Dosage: 400 MG, QD
  4. ASACOL [Concomitant]
     Active Substance: MESALAMINE
     Dosage: 400 MG, QID

REACTIONS (3)
  - Gastrointestinal haemorrhage [Unknown]
  - Urinary bladder haemorrhage [Unknown]
  - Haematuria [Unknown]
